FAERS Safety Report 19231536 (Version 2)
Quarter: 2021Q2

REPORT INFORMATION
  Report Type: Spontaneous
  Country: CA (occurrence: CA)
  Receive Date: 20210507
  Receipt Date: 20210628
  Transmission Date: 20210717
  Serious: Yes (Death)
  Sender: FDA-Public Use
  Company Number: CA-ROCHE-2820648

PATIENT
  Age: 29 Year
  Sex: Male
  Weight: 87 kg

DRUGS (4)
  1. BEVACIZUMAB. [Suspect]
     Active Substance: BEVACIZUMAB
     Route: 042
  2. BEVACIZUMAB. [Suspect]
     Active Substance: BEVACIZUMAB
     Route: 065
  3. BEVACIZUMAB. [Suspect]
     Active Substance: BEVACIZUMAB
     Route: 065
  4. BEVACIZUMAB. [Suspect]
     Active Substance: BEVACIZUMAB
     Indication: GLIOBLASTOMA
     Route: 042

REACTIONS (19)
  - Decreased appetite [Fatal]
  - Depression [Fatal]
  - Pain [Fatal]
  - Sleep disorder [Fatal]
  - Diarrhoea [Fatal]
  - Skin lesion [Fatal]
  - Thrombosis [Fatal]
  - Alanine aminotransferase increased [Fatal]
  - Constipation [Fatal]
  - Fatigue [Fatal]
  - Fear [Fatal]
  - Disturbance in attention [Fatal]
  - Impaired healing [Fatal]
  - Hypertension [Fatal]
  - Malaise [Fatal]
  - Memory impairment [Fatal]
  - Muscle spasms [Fatal]
  - Anger [Fatal]
  - Frustration tolerance decreased [Fatal]
